FAERS Safety Report 13948115 (Version 1)
Quarter: 2017Q3

REPORT INFORMATION
  Report Type: Spontaneous
  Country: US (occurrence: US)
  Receive Date: 20170907
  Receipt Date: 20170907
  Transmission Date: 20171128
  Serious: Yes (Other)
  Sender: FDA-Public Use
  Company Number: None

PATIENT
  Age: 75 Year
  Sex: Male
  Weight: 98.19 kg

DRUGS (14)
  1. QUETIAPINE. [Concomitant]
     Active Substance: QUETIAPINE
  2. TERAZOSIN [Concomitant]
     Active Substance: TERAZOSIN\TERAZOSIN HYDROCHLORIDE
  3. LOMOTI [Concomitant]
  4. DONEPEZIL. [Concomitant]
     Active Substance: DONEPEZIL
  5. LORAZEPAM. [Concomitant]
     Active Substance: LORAZEPAM
  6. SIMVASTATIN. [Concomitant]
     Active Substance: SIMVASTATIN
  7. PREDNISONE. [Suspect]
     Active Substance: PREDNISONE
     Indication: PROSTATE CANCER
     Route: 048
     Dates: start: 20170424, end: 20170907
  8. LANSOPRAZOLE. [Concomitant]
     Active Substance: LANSOPRAZOLE
  9. SINEMET [Concomitant]
     Active Substance: CARBIDOPA\LEVODOPA
  10. BICALUTAMIDE. [Concomitant]
     Active Substance: BICALUTAMIDE
  11. GABAPENTIN. [Concomitant]
     Active Substance: GABAPENTIN
  12. LATANOPROST. [Concomitant]
     Active Substance: LATANOPROST
  13. ZYTIGA [Suspect]
     Active Substance: ABIRATERONE ACETATE
     Indication: PROSTATE CANCER
     Route: 048
     Dates: start: 20170411, end: 20170907
  14. LUPRON DEPOT [Concomitant]
     Active Substance: LEUPROLIDE ACETATE

REACTIONS (1)
  - Disease progression [None]
